FAERS Safety Report 4514252-0 (Version None)
Quarter: 2004Q4

REPORT INFORMATION
  Report Type: 
  Country: None (occurrence: None)
  Receive Date: 20041124
  Receipt Date: 20041108
  Transmission Date: 20050328
  Serious: Yes (Death, Life-Threatening, Hospitalization)
  Sender: FDA-Public Use
  Company Number: EWC041041030

PATIENT
  Age: 64 Year
  Sex: Female
  Weight: 55 kg

DRUGS (12)
  1. GEMCITABINE HYDROCHLORIDE-IV (GEMCITABINE) [Suspect]
     Indication: NON-SMALL CELL LUNG CANCER
     Dosage: 1250 MG/M2/1 OTHER
     Route: 050
     Dates: start: 20040812
  2. GEMCITABINE HYDROCHLORIDE-IV (GEMCITABINE) [Suspect]
  3. CISPLATIN [Concomitant]
  4. TRAMADOL HCL [Concomitant]
  5. EDNYT (ENALAPRIL MALEATE) [Concomitant]
  6. TRENTAL [Concomitant]
  7. XANAX (ALPRAZOLAM DUM) [Concomitant]
  8. FUROSEMIDE [Concomitant]
  9. K CL TAB [Concomitant]
  10. MILURIT (ALLOPURINOL) [Concomitant]
  11. RETAFYLLIN (THEOPHYLLINE) [Concomitant]
  12. VOLTAREN-XR [Concomitant]

REACTIONS (5)
  - AZOTAEMIA [None]
  - BLOOD POTASSIUM INCREASED [None]
  - HYPOXIA [None]
  - LOSS OF CONSCIOUSNESS [None]
  - RESPIRATORY DISORDER [None]
